FAERS Safety Report 13207879 (Version 1)
Quarter: 2017Q1

REPORT INFORMATION
  Report Type: Spontaneous
  Country: US (occurrence: US)
  Receive Date: 20170209
  Receipt Date: 20170209
  Transmission Date: 20170428
  Serious: No
  Sender: FDA-Public Use
  Company Number: US-TEIKOKU PHARMA USA-TPU2017-00075

PATIENT
  Age: 56 Year
  Sex: Female
  Weight: 63.56 kg

DRUGS (3)
  1. SYNTHROID [Concomitant]
     Active Substance: LEVOTHYROXINE SODIUM
     Indication: PRODUCT USED FOR UNKNOWN INDICATION
  2. VITAMIN B12 [Concomitant]
     Active Substance: CYANOCOBALAMIN
     Indication: PERNICIOUS ANAEMIA
  3. LIDOCAINE PATCH [Suspect]
     Active Substance: LIDOCAINE
     Indication: INJECTION SITE PAIN
     Dosage: 2 PATCHES, PLACED ON LOW BACK FOR 12 HOURS
     Route: 061
     Dates: start: 20170131

REACTIONS (1)
  - Multiple use of single-use product [Unknown]

NARRATIVE: CASE EVENT DATE: 20170131
